FAERS Safety Report 6687123-1 (Version None)
Quarter: 2010Q2

REPORT INFORMATION
  Report Type: 
  Country: None (occurrence: None)
  Receive Date: 20100419
  Receipt Date: 20100407
  Transmission Date: 20101027
  Serious: Yes (Death, Other)
  Sender: FDA-Public Use
  Company Number: JP-ROCHE-691841

PATIENT
  Sex: Female
  Weight: 64 kg

DRUGS (72)
  1. AVASTIN [Suspect]
     Indication: COLON CANCER METASTATIC
     Route: 041
     Dates: start: 20070920, end: 20070920
  2. AVASTIN [Suspect]
     Route: 041
     Dates: start: 20071009, end: 20071009
  3. AVASTIN [Suspect]
     Route: 041
     Dates: start: 20071030, end: 20071030
  4. AVASTIN [Suspect]
     Route: 041
     Dates: start: 20071113, end: 20071113
  5. AVASTIN [Suspect]
     Route: 041
     Dates: start: 20071127, end: 20071127
  6. AVASTIN [Suspect]
     Route: 041
     Dates: start: 20071211, end: 20071211
  7. AVASTIN [Suspect]
     Route: 041
     Dates: start: 20071225, end: 20071225
  8. AVASTIN [Suspect]
     Route: 041
     Dates: start: 20080108, end: 20080108
  9. AVASTIN [Suspect]
     Route: 041
     Dates: start: 20080122, end: 20080122
  10. AVASTIN [Suspect]
     Route: 041
     Dates: start: 20080205, end: 20080205
  11. AVASTIN [Suspect]
     Route: 041
     Dates: start: 20080219, end: 20080219
  12. AVASTIN [Suspect]
     Route: 041
     Dates: start: 20080304, end: 20080304
  13. AVASTIN [Suspect]
     Route: 041
     Dates: start: 20080318, end: 20080318
  14. AVASTIN [Suspect]
     Route: 041
     Dates: start: 20080401, end: 20080527
  15. ELPLAT [Suspect]
     Indication: COLON CANCER METASTATIC
     Route: 041
     Dates: start: 20070920, end: 20070920
  16. ELPLAT [Suspect]
     Route: 041
     Dates: start: 20071009, end: 20071009
  17. ELPLAT [Suspect]
     Route: 041
     Dates: start: 20071030, end: 20071030
  18. ELPLAT [Suspect]
     Route: 041
     Dates: start: 20071113, end: 20071113
  19. ELPLAT [Suspect]
     Route: 041
     Dates: start: 20071127, end: 20071127
  20. ELPLAT [Suspect]
     Route: 041
     Dates: start: 20071211, end: 20071211
  21. FLUOROURACIL [Suspect]
     Indication: COLON CANCER METASTATIC
     Route: 040
     Dates: start: 20070920, end: 20070920
  22. FLUOROURACIL [Suspect]
     Route: 040
     Dates: start: 20071009, end: 20071009
  23. FLUOROURACIL [Suspect]
     Route: 040
     Dates: start: 20071030, end: 20071030
  24. FLUOROURACIL [Suspect]
     Route: 040
     Dates: start: 20071113, end: 20071113
  25. FLUOROURACIL [Suspect]
     Route: 040
     Dates: start: 20071127, end: 20071127
  26. FLUOROURACIL [Suspect]
     Route: 040
     Dates: start: 20071211, end: 20071211
  27. FLUOROURACIL [Suspect]
     Route: 040
     Dates: start: 20071225, end: 20071225
  28. FLUOROURACIL [Suspect]
     Route: 040
     Dates: start: 20080108, end: 20080108
  29. FLUOROURACIL [Suspect]
     Route: 040
     Dates: start: 20080122, end: 20080122
  30. FLUOROURACIL [Suspect]
     Route: 040
     Dates: start: 20080205, end: 20080205
  31. FLUOROURACIL [Suspect]
     Route: 040
     Dates: start: 20080219, end: 20080219
  32. FLUOROURACIL [Suspect]
     Route: 040
     Dates: start: 20080304, end: 20080304
  33. FLUOROURACIL [Suspect]
     Route: 040
     Dates: start: 20080318, end: 20080318
  34. FLUOROURACIL [Suspect]
     Route: 040
     Dates: start: 20080401, end: 20080401
  35. FLUOROURACIL [Suspect]
     Route: 041
     Dates: start: 20070920, end: 20070922
  36. FLUOROURACIL [Suspect]
     Route: 041
     Dates: start: 20071009, end: 20071011
  37. FLUOROURACIL [Suspect]
     Route: 041
     Dates: start: 20071030, end: 20071101
  38. FLUOROURACIL [Suspect]
     Route: 041
     Dates: start: 20071113, end: 20071115
  39. FLUOROURACIL [Suspect]
     Route: 041
     Dates: start: 20071127, end: 20071129
  40. FLUOROURACIL [Suspect]
     Route: 041
     Dates: start: 20071211, end: 20071213
  41. FLUOROURACIL [Suspect]
     Route: 041
     Dates: start: 20071225, end: 20071227
  42. FLUOROURACIL [Suspect]
     Route: 041
     Dates: start: 20080108, end: 20080110
  43. FLUOROURACIL [Suspect]
     Route: 041
     Dates: start: 20080122, end: 20080124
  44. FLUOROURACIL [Suspect]
     Route: 041
     Dates: start: 20080205, end: 20080207
  45. FLUOROURACIL [Suspect]
     Route: 041
     Dates: start: 20080219, end: 20080221
  46. FLUOROURACIL [Suspect]
     Route: 041
     Dates: start: 20080304, end: 20080306
  47. FLUOROURACIL [Suspect]
     Route: 041
     Dates: start: 20080318, end: 20080320
  48. FLUOROURACIL [Suspect]
     Route: 041
     Dates: start: 20080401, end: 20080403
  49. FLUOROURACIL [Suspect]
     Route: 041
     Dates: start: 20080401, end: 20080529
  50. LEUCOVORIN CALCIUM [Suspect]
     Indication: COLON CANCER METASTATIC
     Route: 041
     Dates: start: 20070920, end: 20070920
  51. LEUCOVORIN CALCIUM [Suspect]
     Route: 041
     Dates: start: 20071009, end: 20071009
  52. LEUCOVORIN CALCIUM [Suspect]
     Route: 041
     Dates: start: 20071030, end: 20071030
  53. LEUCOVORIN CALCIUM [Suspect]
     Route: 041
     Dates: start: 20071113, end: 20071113
  54. LEUCOVORIN CALCIUM [Suspect]
     Route: 041
     Dates: start: 20071127, end: 20071127
  55. LEUCOVORIN CALCIUM [Suspect]
     Route: 041
     Dates: start: 20071211, end: 20071211
  56. LEUCOVORIN CALCIUM [Suspect]
     Route: 041
     Dates: start: 20071225, end: 20071225
  57. LEUCOVORIN CALCIUM [Suspect]
     Route: 041
     Dates: start: 20080108, end: 20080108
  58. LEUCOVORIN CALCIUM [Suspect]
     Route: 041
     Dates: start: 20080122, end: 20080122
  59. LEUCOVORIN CALCIUM [Suspect]
     Route: 041
     Dates: start: 20080205, end: 20080205
  60. LEUCOVORIN CALCIUM [Suspect]
     Route: 041
     Dates: start: 20080219, end: 20080219
  61. LEUCOVORIN CALCIUM [Suspect]
     Route: 041
     Dates: start: 20080304, end: 20080304
  62. LEUCOVORIN CALCIUM [Suspect]
     Route: 041
     Dates: start: 20080318, end: 20080318
  63. LEUCOVORIN CALCIUM [Suspect]
     Route: 041
     Dates: start: 20080401, end: 20080401
  64. LEUCOVORIN CALCIUM [Suspect]
     Route: 041
     Dates: start: 20080401, end: 20080527
  65. DECADRON [Concomitant]
     Dosage: ROUTE: INTRAVENOUS (NOT OTHERWISE SPECIFIED)
     Route: 042
     Dates: start: 20070920, end: 20070920
  66. KYTRIL [Concomitant]
     Route: 042
     Dates: start: 20070920, end: 20070920
  67. CALCICOL [Concomitant]
     Route: 042
     Dates: start: 20070920, end: 20070920
  68. MAGNESIUM SULFATE [Concomitant]
     Dosage: DRUG NAME REPORTED:  CONCLYTE-MG
     Route: 042
     Dates: start: 20070920, end: 20070920
  69. OXYCONTIN [Concomitant]
     Dosage: DOSE FORM: SUSTAINED-RELEASE TABLET
     Route: 048
     Dates: start: 20070920, end: 20070928
  70. MAGMITT [Concomitant]
     Route: 048
     Dates: start: 20070920, end: 20070928
  71. GASTER D [Concomitant]
     Route: 048
     Dates: start: 20070920, end: 20070928
  72. TOFRANIL [Concomitant]
     Route: 048
     Dates: start: 20070920, end: 20070928

REACTIONS (14)
  - ABDOMINAL PAIN UPPER [None]
  - ALOPECIA [None]
  - BLOOD ALBUMIN DECREASED [None]
  - DECREASED APPETITE [None]
  - DEPRESSION [None]
  - DISEASE PROGRESSION [None]
  - DYSLALIA [None]
  - HAEMOGLOBIN DECREASED [None]
  - INFECTION [None]
  - NAUSEA [None]
  - PERIPHERAL SENSORY NEUROPATHY [None]
  - STOMATITIS [None]
  - VENOUS THROMBOSIS [None]
  - VOMITING [None]
